FAERS Safety Report 4329832-5 (Version None)
Quarter: 2004Q1

REPORT INFORMATION
  Report Type: 
  Country: None (occurrence: None)
  Receive Date: 20040329
  Receipt Date: 20040316
  Transmission Date: 20041129
  Serious: Yes (Hospitalization)
  Sender: FDA-Public Use
  Company Number: UK064717

PATIENT
  Age: 66 Year
  Sex: Male

DRUGS (4)
  1. KINERET [Suspect]
     Indication: RHEUMATOID ARTHRITIS
     Dosage: 100 MG, 1 IN 1 DAYS, SC
     Route: 058
     Dates: start: 20020701, end: 20021101
  2. METHOTREXATE [Suspect]
     Dosage: 10 MG, 1 IN 1 WEEKS
     Dates: start: 20020701, end: 20030701
  3. LEFLUNOMIDE [Suspect]
     Dosage: 20 MG,  1 IN 1 DAYS
     Dates: start: 20021101, end: 20030701
  4. GLUCOCORTICOSTEROID [Concomitant]

REACTIONS (1)
  - PULMONARY TUBERCULOSIS [None]
